FAERS Safety Report 9196550 (Version 3)
Quarter: 2013Q2

REPORT INFORMATION
  Report Type: Spontaneous
  Country: ZA (occurrence: ZA)
  Receive Date: 20130328
  Receipt Date: 20130412
  Transmission Date: 20140414
  Serious: Yes (Other)
  Sender: FDA-Public Use
  Company Number: ZA-PFIZER INC-2013100306

PATIENT
  Age: 40 Year
  Sex: Male

DRUGS (2)
  1. CHAMPIX [Suspect]
     Dosage: 0.5 MG, 1X/DAY
     Route: 048
     Dates: start: 20130223, end: 20130225
  2. CHAMPIX [Suspect]
     Dosage: 1 MG, 2X/DAY (MORNING AND AFTERNOON)
     Route: 048
     Dates: start: 20130226, end: 20130325

REACTIONS (9)
  - Hallucination [Recovered/Resolved]
  - Depression [Recovered/Resolved]
  - Malaise [Recovered/Resolved]
  - Pyrexia [Recovered/Resolved]
  - Oropharyngeal pain [Recovered/Resolved]
  - Anger [Recovered/Resolved]
  - Mood swings [Recovered/Resolved]
  - Anxiety disorder [Recovered/Resolved]
  - Irritability [Recovered/Resolved]
